FAERS Safety Report 16004593 (Version 1)
Quarter: 2019Q1

REPORT INFORMATION
  Report Type: Spontaneous
  Country: DE (occurrence: DE)
  Receive Date: 20190226
  Receipt Date: 20190226
  Transmission Date: 20190418
  Serious: Yes (Hospitalization)
  Sender: FDA-Public Use
  Company Number: DE-ASTRAZENECA-2019SE28548

PATIENT
  Age: 17 Year
  Sex: Male
  Weight: 67 kg

DRUGS (6)
  1. CIATYL TROPFEN [Concomitant]
     Dosage: DAILY DOSE: 24 GTT DROP(S) EVERY DAYS
     Route: 048
  2. BELLADONNA TINCTUR [Concomitant]
     Dosage: DAILY DOSE: 27 GTT DROP(S) EVERY DAYS
     Route: 048
  3. QUETIAPINE. [Suspect]
     Active Substance: QUETIAPINE
     Indication: WRONG DRUG
     Dosage: 200.0MG UNKNOWN
     Route: 048
     Dates: start: 20180715, end: 20180715
  4. ARIPIPRAZOLE. [Suspect]
     Active Substance: ARIPIPRAZOLE
     Indication: WRONG DRUG
     Dosage: 5.0MG UNKNOWN
     Route: 048
     Dates: start: 20180715, end: 20180715
  5. RISPERIDONE. [Suspect]
     Active Substance: RISPERIDONE
     Indication: WRONG DRUG
     Route: 048
     Dates: start: 20180715, end: 20180715
  6. PIPAMPERONE [Concomitant]
     Active Substance: PIPAMPERONE
     Route: 048

REACTIONS (4)
  - Wrong product administered [Recovered/Resolved]
  - Seizure [Recovered/Resolved]
  - Product dose omission [Recovered/Resolved]
  - Product administration error [Recovered/Resolved]

NARRATIVE: CASE EVENT DATE: 20180715
